FAERS Safety Report 4694029-6 (Version None)
Quarter: 2005Q2

REPORT INFORMATION
  Report Type: 
  Country: None (occurrence: None)
  Receive Date: 20050616
  Receipt Date: 20050602
  Transmission Date: 20051028
  Serious: Yes (Other)
  Sender: FDA-Public Use
  Company Number: 232284K05USA

PATIENT
  Age: 60 Year
  Sex: Female

DRUGS (1)
  1. REBIF [Suspect]
     Indication: MULTIPLE SCLEROSIS
     Dates: start: 20050110, end: 20050501

REACTIONS (6)
  - FEEDING TUBE COMPLICATION [None]
  - FEELING ABNORMAL [None]
  - INFECTION [None]
  - INJECTION SITE INFECTION [None]
  - INJECTION SITE PUSTULE [None]
  - INJECTION SITE SWELLING [None]
